FAERS Safety Report 6737806-X (Version None)
Quarter: 2010Q2

REPORT INFORMATION
  Report Type: 
  Country: None (occurrence: None)
  Receive Date: 20100524
  Receipt Date: 20100517
  Transmission Date: 20101027
  Serious: Yes (Other)
  Sender: FDA-Public Use
  Company Number: CHPA2010US08617

PATIENT
  Age: 84 Year
  Sex: Male
  Weight: 84.807 kg

DRUGS (2)
  1. VOLTAREN [Suspect]
     Indication: OEDEMA PERIPHERAL
     Dosage: 4 G, QID
     Route: 061
     Dates: start: 20100301, end: 20100501
  2. VOLTAREN [Suspect]
     Indication: PAIN IN EXTREMITY

REACTIONS (3)
  - DRUG ADMINISTERED AT INAPPROPRIATE SITE [None]
  - OFF LABEL USE [None]
  - SENSORY LOSS [None]
